FAERS Safety Report 20175117 (Version 10)
Quarter: 2022Q3

REPORT INFORMATION
  Report Type: Spontaneous
  Country: CA (occurrence: CA)
  Receive Date: 20211213
  Receipt Date: 20220712
  Transmission Date: 20221027
  Serious: Yes (Other)
  Sender: FDA-Public Use
  Company Number: CA-CELLTRION INC.-2021CA015838

PATIENT

DRUGS (25)
  1. INFLECTRA [Suspect]
     Active Substance: INFLIXIMAB-DYYB
     Indication: Rheumatoid arthritis
     Dosage: 380 MG 0. 2, 6 THEN EVERY 8 WEEKS
     Route: 041
  2. INFLECTRA [Suspect]
     Active Substance: INFLIXIMAB-DYYB
     Dosage: 380 MG 0. 2, 6 THEN EVERY 8 WEEKS
     Route: 041
     Dates: start: 20210607, end: 20220125
  3. INFLECTRA [Suspect]
     Active Substance: INFLIXIMAB-DYYB
     Dosage: 380 MG 0. 2, 6 THEN EVERY 8 WEEKS
     Route: 041
     Dates: start: 20210913
  4. INFLECTRA [Suspect]
     Active Substance: INFLIXIMAB-DYYB
     Dosage: 380 MG 0. 2, 6 THEN EVERY 8 WEEKS
     Route: 041
     Dates: start: 20211202
  5. INFLECTRA [Suspect]
     Active Substance: INFLIXIMAB-DYYB
     Dosage: 380 MG 0. 2, 6 THEN EVERY 8 WEEKS
     Route: 041
     Dates: start: 20220125
  6. INFLECTRA [Suspect]
     Active Substance: INFLIXIMAB-DYYB
     Dosage: 380 MG, EVERY 6 WEEK
     Route: 042
     Dates: start: 20220504
  7. INFLECTRA [Suspect]
     Active Substance: INFLIXIMAB-DYYB
     Dosage: 380 MG, EVERY 6 WEEK
     Route: 042
     Dates: start: 20220505
  8. INFLECTRA [Suspect]
     Active Substance: INFLIXIMAB-DYYB
     Dosage: 380 MG, EVERY 6 WEEK
     Route: 042
     Dates: start: 20220630
  9. INFLECTRA [Suspect]
     Active Substance: INFLIXIMAB-DYYB
     Dosage: 380 MG, EVERY 6 WEEK
     Route: 042
     Dates: start: 20220630
  10. AMITRIPTYLINE HYDROCHLORIDE [Concomitant]
     Active Substance: AMITRIPTYLINE HYDROCHLORIDE
     Dosage: 1 DF, UNK, DOSAGE NOT AVAILABLE
     Route: 065
  11. ATORVASTATIN CALCIUM [Concomitant]
     Active Substance: ATORVASTATIN CALCIUM
     Dosage: 1 DF, DOSAGE NOT AVAILABLE
     Route: 065
  12. CETIRIN [CETIRIZINE HYDROCHLORIDE] [Concomitant]
     Indication: Drug hypersensitivity
     Dosage: 1 DF, DOSAGE NOT AVAILABLE
     Route: 065
  13. CLOTRIMAZOLE [Concomitant]
     Active Substance: CLOTRIMAZOLE
     Dosage: 1 DF, DOSAGE NOT AVAILABLE
     Route: 061
  14. CITALOPRAM [Concomitant]
     Active Substance: CITALOPRAM HYDROBROMIDE
     Dosage: 1 DF, UNK, DOSAGE NOT AVAILABLE
     Route: 065
  15. DEXILANT [Concomitant]
     Active Substance: DEXLANSOPRAZOLE
     Dosage: 1 DF, 2X/DAY, DOSAGE NOT AVAILABLE
     Route: 065
  16. FERROUS SULFATE [Concomitant]
     Active Substance: FERROUS SULFATE
     Dosage: 300 MG, 3X/DAY
     Route: 065
  17. HYDROCHLOROTHIAZIDE [Concomitant]
     Active Substance: HYDROCHLOROTHIAZIDE
     Dosage: 1 DF, DOSAGE NOT AVAILABLE
     Route: 065
  18. IMMUNE GLOBULIN NOS [Concomitant]
     Active Substance: IMMUNE GLOBULIN NOS
     Dosage: 1 DF, 1X/DAY
     Route: 065
  19. IMMUNE GLOBULIN NOS [Concomitant]
     Active Substance: IMMUNE GLOBULIN NOS
     Dosage: 1 DF, MONTHLY
     Route: 065
  20. METFORMIN [Concomitant]
     Active Substance: METFORMIN HYDROCHLORIDE
     Dosage: 1 DF, 2X/DAY, DOSAGE NOT AVAILABLE
     Route: 065
  21. PREDNISONE [Concomitant]
     Active Substance: PREDNISONE
     Dosage: 5 MG (1X/DAY (4 TABLETS DAILY, DECREASING UP TO 1 TABLET PER DAY))
     Route: 065
  22. RISEDRONATE SODIUM [Concomitant]
     Active Substance: RISEDRONATE SODIUM
     Dosage: 1 DF (WEEKLY), DOSAGE NOT AVAILABLE
     Route: 065
  23. MORPHINE SULFATE [Concomitant]
     Active Substance: MORPHINE SULFATE
     Indication: Carpal tunnel syndrome
     Dosage: 1 DF (AS NEEDED)
     Route: 065
  24. SYNTHROID [Concomitant]
     Active Substance: LEVOTHYROXINE SODIUM
     Dosage: 1 DF, DOSAGE NOT AVAILABLE
     Route: 065
  25. ERGOCALCIFEROL [Concomitant]
     Active Substance: ERGOCALCIFEROL
     Dosage: 1 DF
     Route: 065

REACTIONS (11)
  - Bronchitis [Unknown]
  - Surgery [Unknown]
  - Off label use [Unknown]
  - Inappropriate schedule of product administration [Unknown]
  - Cough [Unknown]
  - Pyrexia [Unknown]
  - Urinary tract infection [Recovered/Resolved]
  - Illness [Unknown]
  - Vomiting [Not Recovered/Not Resolved]
  - Diarrhoea [Not Recovered/Not Resolved]
  - Nausea [Not Recovered/Not Resolved]

NARRATIVE: CASE EVENT DATE: 20210101
